FAERS Safety Report 9757213 (Version 5)
Quarter: 2014Q2

REPORT INFORMATION
  Report Type: Report from Study
  Country: US (occurrence: US)
  Receive Date: 20131213
  Receipt Date: 20140604
  Transmission Date: 20141212
  Serious: Yes (Hospitalization, Other)
  Sender: FDA-Public Use
  Company Number: US-ASTRAZENECA-2013SE68785

PATIENT
  Age: 24337 Day
  Sex: Male
  Weight: 119.3 kg

DRUGS (11)
  1. AZD6140 [Suspect]
     Indication: PERIPHERAL ARTERIAL OCCLUSIVE DISEASE
     Route: 048
     Dates: start: 20130416, end: 20130816
  2. METOPROLOL SUCCINATE [Concomitant]
     Indication: HYPERTENSION
     Route: 048
     Dates: start: 20120118
  3. ROSUVASTATIN [Concomitant]
     Indication: HYPERCHOLESTEROLAEMIA
     Route: 048
     Dates: start: 20120118
  4. HYDROCHLOROTHIAZIDE [Concomitant]
     Indication: HYPERTENSION
     Route: 048
     Dates: start: 20110518
  5. AMLODIPINE [Concomitant]
     Indication: CARDIAC DISORDER
     Route: 048
     Dates: start: 20120621
  6. EZETIMIBE [Concomitant]
     Indication: HYPERCHOLESTEROLAEMIA
     Route: 048
     Dates: start: 20120621
  7. FUROSEMIDE [Concomitant]
     Indication: FLUID RETENTION
     Route: 048
     Dates: start: 20120621
  8. POTASSIUM CHLORIDE [Concomitant]
     Indication: HYPERTENSION
     Route: 048
     Dates: start: 20120621
  9. VALSARTIN [Concomitant]
     Indication: CARDIAC DISORDER
     Route: 048
     Dates: start: 20120621
  10. CLONIDINE [Concomitant]
     Indication: HYPERTENSION
     Route: 048
     Dates: start: 201212
  11. IMDUR [Concomitant]
     Indication: CARDIAC DISORDER
     Route: 048
     Dates: start: 20100118

REACTIONS (2)
  - Diverticulum [Recovered/Resolved]
  - Renal failure acute [Recovering/Resolving]
